FAERS Safety Report 8488267-4 (Version None)
Quarter: 2012Q3

REPORT INFORMATION
  Report Type: 
  Country: None (occurrence: None)
  Receive Date: 20120705
  Receipt Date: 20120629
  Transmission Date: 20120928
  Serious: Yes (Other)
  Sender: FDA-Public Use
  Company Number: JP-PFIZER INC-2012156422

PATIENT
  Age: 50 Year
  Sex: Female
  Weight: 42 kg

DRUGS (9)
  1. MAGMITT [Concomitant]
  2. LYRICA [Concomitant]
  3. TEPRENONE [Concomitant]
  4. DEPAS [Concomitant]
  5. CLONAZEPAM [Concomitant]
  6. LOXOPROFEN [Concomitant]
  7. LENDORMIN D [Concomitant]
  8. XALKORI [Suspect]
     Indication: LUNG ADENOCARCINOMA
     Dosage: 250 MG, 2X/DAY
     Route: 048
     Dates: start: 20120516, end: 20120523
  9. RABEPRAZOLE SODIUM [Concomitant]

REACTIONS (1)
  - INTERSTITIAL LUNG DISEASE [None]
